FAERS Safety Report 13094078 (Version 15)
Quarter: 2018Q2

REPORT INFORMATION
  Report Type: Spontaneous
  Country: US (occurrence: US)
  Receive Date: 20170106
  Receipt Date: 20180518
  Transmission Date: 20180711
  Serious: Yes (Hospitalization)
  Sender: FDA-Public Use
  Company Number: US-PFIZER INC-2017001191

PATIENT
  Age: 68 Year
  Sex: Female
  Weight: 85.71 kg

DRUGS (10)
  1. IBRANCE [Suspect]
     Active Substance: PALBOCICLIB
     Dosage: 100 MG, CYCLIC (D 1-21 Q 28 DAYS)
     Route: 048
  2. IBRANCE [Suspect]
     Active Substance: PALBOCICLIB
     Dosage: 100 MG, CYCLIC (DAYS 1-21 Q28 DAYS)
     Route: 048
  3. IBRANCE [Suspect]
     Active Substance: PALBOCICLIB
     Indication: BREAST CANCER METASTATIC
     Dosage: 125 MG, CYCLIC (D1-D21 Q28 D)
     Route: 048
     Dates: start: 20161216
  4. IBRANCE [Suspect]
     Active Substance: PALBOCICLIB
     Dosage: 100 MG, CYCLIC (DAYS 1-21 Q28 DAYS)
     Route: 048
  5. AROMASIN [Concomitant]
     Active Substance: EXEMESTANE
     Dosage: UNK
  6. IBRANCE [Suspect]
     Active Substance: PALBOCICLIB
     Dosage: 100 MG, CYCLIC (DAYS 1-21 Q28 DAYS)
     Route: 048
  7. IBRANCE [Suspect]
     Active Substance: PALBOCICLIB
     Dosage: 100 MG, CYCLIC (DAYS 1-21 Q28 DAYS)
     Route: 048
  8. IBRANCE [Suspect]
     Active Substance: PALBOCICLIB
     Dosage: 100 MG, CYCLIC (DAYS 1-21 Q28 DAYS)
     Route: 048
  9. IBRANCE [Suspect]
     Active Substance: PALBOCICLIB
     Dosage: 100 MG, CYCLIC (DAYS 1-21 Q28 DAYS)
     Route: 048
  10. IBRANCE [Suspect]
     Active Substance: PALBOCICLIB
     Dosage: 100 MG, CYCLIC (DAYS 1-21 Q28 DAYS)
     Route: 048

REACTIONS (37)
  - Influenza [Unknown]
  - Gastrointestinal sounds abnormal [Unknown]
  - Fatigue [Not Recovered/Not Resolved]
  - Back pain [Unknown]
  - Chromaturia [Unknown]
  - Trichorrhexis [Unknown]
  - Hair texture abnormal [Unknown]
  - Dyspepsia [Unknown]
  - Dry skin [Not Recovered/Not Resolved]
  - Anaemia [Unknown]
  - Contusion [Unknown]
  - Seasonal allergy [Unknown]
  - Peripheral swelling [Unknown]
  - White blood cell count decreased [Not Recovered/Not Resolved]
  - Alopecia [Unknown]
  - Skin exfoliation [Unknown]
  - Diarrhoea [Recovered/Resolved]
  - Hypoaesthesia [Unknown]
  - Insomnia [Recovered/Resolved]
  - Pruritus [Unknown]
  - Mouth haemorrhage [Unknown]
  - Flatulence [Unknown]
  - Headache [Unknown]
  - Red blood cell count decreased [Not Recovered/Not Resolved]
  - Poor quality sleep [Unknown]
  - Onychoclasis [Unknown]
  - Cough [Unknown]
  - Arthropod bite [Unknown]
  - Urticaria [Unknown]
  - Full blood count decreased [Unknown]
  - Pyrexia [Unknown]
  - Abdominal pain upper [Not Recovered/Not Resolved]
  - Dry mouth [Unknown]
  - Pain [Unknown]
  - Nausea [Not Recovered/Not Resolved]
  - Stomatitis [Not Recovered/Not Resolved]
  - Pain of skin [Not Recovered/Not Resolved]

NARRATIVE: CASE EVENT DATE: 201702
